FAERS Safety Report 10043646 (Version 1)
Quarter: 2014Q1

REPORT INFORMATION
  Report Type: Spontaneous
  Country: US (occurrence: US)
  Receive Date: 20140328
  Receipt Date: 20140328
  Transmission Date: 20141002
  Serious: No
  Sender: FDA-Public Use
  Company Number: US-MYLANLABS-2013S1026017

PATIENT
  Sex: Female
  Weight: 50.8 kg

DRUGS (4)
  1. VERAPAMIL [Suspect]
  2. SINGULAIR [Concomitant]
  3. NASALCROM [Concomitant]
  4. MULTIVITAMIN [Concomitant]

REACTIONS (6)
  - Cardiac disorder [Not Recovered/Not Resolved]
  - Gastrointestinal disorder [Not Recovered/Not Resolved]
  - Dehydration [Not Recovered/Not Resolved]
  - Constipation [Not Recovered/Not Resolved]
  - Vomiting [Not Recovered/Not Resolved]
  - Diarrhoea [Not Recovered/Not Resolved]
